FAERS Safety Report 11158743 (Version 1)
Quarter: 2015Q2

REPORT INFORMATION
  Report Type: Spontaneous
  Country: US (occurrence: US)
  Receive Date: 20150603
  Receipt Date: 20150603
  Transmission Date: 20150821
  Serious: No
  Sender: FDA-Public Use
  Company Number: US-PFIZER INC-2015184716

PATIENT
  Age: 63 Year
  Sex: Female
  Weight: 87.75 kg

DRUGS (2)
  1. SKELAXIN [Suspect]
     Active Substance: METAXALONE
     Indication: MUSCLE SPASMS
  2. SKELAXIN [Suspect]
     Active Substance: METAXALONE
     Indication: FIBROMYALGIA
     Dosage: UNK

REACTIONS (3)
  - Scar [Unknown]
  - Malaise [Unknown]
  - Off label use [Unknown]
